FAERS Safety Report 10210016 (Version 1)
Quarter: 2014Q2

REPORT INFORMATION
  Report Type: Spontaneous
  Country: HU (occurrence: HU)
  Receive Date: 20140602
  Receipt Date: 20140602
  Transmission Date: 20141212
  Serious: Yes (Hospitalization)
  Sender: FDA-Public Use
  Company Number: HU-JNJFOC-20140517302

PATIENT
  Age: 71 Year
  Sex: Female

DRUGS (5)
  1. SIMPONI [Suspect]
     Indication: RHEUMATOID ARTHRITIS
     Route: 058
     Dates: start: 201001, end: 20110310
  2. MERCKFORMIN [Concomitant]
     Indication: DIABETES MELLITUS
     Route: 065
  3. COAPROVEL [Concomitant]
     Indication: HYPERTENSION
     Route: 065
  4. CORYOL [Concomitant]
     Indication: HYPERTENSION
     Route: 065
  5. PANTOPRAZOLE [Concomitant]
     Indication: GASTRITIS
     Route: 065

REACTIONS (1)
  - Colon neoplasm [Recovered/Resolved]
